FAERS Safety Report 16326609 (Version 1)
Quarter: 2019Q2

REPORT INFORMATION
  Report Type: Spontaneous
  Country: US (occurrence: US)
  Receive Date: 20190411
  Receipt Date: 20190411
  Transmission Date: 20190711
  Serious: No
  Sender: FDA-Public Use
  Company Number: None

PATIENT
  Weight: 84.4 kg

DRUGS (3)
  1. ELOXATIN [Suspect]
     Active Substance: OXALIPLATIN
     Dates: end: 20190128
  2. 5-FLUOROURACIL (5-FU) [Suspect]
     Active Substance: FLUOROURACIL
     Dates: end: 20190128
  3. LEUCOVORIN CALCIUM. [Suspect]
     Active Substance: LEUCOVORIN CALCIUM
     Dates: end: 20190128

REACTIONS (6)
  - Abdominal distension [None]
  - Pelvic fluid collection [None]
  - Candida infection [None]
  - Nausea [None]
  - Vomiting [None]
  - Anastomotic leak [None]

NARRATIVE: CASE EVENT DATE: 20190311
